FAERS Safety Report 10369255 (Version 3)
Quarter: 2014Q4

REPORT INFORMATION
  Report Type: Spontaneous
  Country: US (occurrence: BR)
  Receive Date: 20140807
  Receipt Date: 20141023
  Transmission Date: 20150528
  Serious: Yes (Life-Threatening, Hospitalization)
  Sender: FDA-Public Use
  Company Number: BR-FRI-1000069596

PATIENT
  Age: 69 Year
  Sex: Male
  Weight: 93 kg

DRUGS (19)
  1. DAFLON [Concomitant]
     Active Substance: DIOSMIN\HESPERIDIN
  2. MEMANTINE [Concomitant]
     Active Substance: MEMANTINE
     Dates: start: 2013
  3. NEBILET [Concomitant]
     Active Substance: NEBIVOLOL
     Dates: start: 1993
  4. AMLODIPINE [Concomitant]
     Active Substance: AMLODIPINE BESYLATE
     Dates: start: 2009
  5. VENLAFAXINE [Concomitant]
     Active Substance: VENLAFAXINE HYDROCHLORIDE
     Dates: start: 2009
  6. ROFLUMILAST [Suspect]
     Active Substance: ROFLUMILAST
     Indication: CHRONIC OBSTRUCTIVE PULMONARY DISEASE
     Dosage: 1 DF
     Route: 048
     Dates: start: 201407, end: 20140724
  7. ROFLUMILAST [Suspect]
     Active Substance: ROFLUMILAST
     Route: 048
     Dates: start: 201403
  8. AZITHROMYCIN [Concomitant]
     Active Substance: AZITHROMYCIN ANHYDROUS
     Dates: start: 20140601
  9. CLINFAR [Concomitant]
     Active Substance: SIMVASTATIN
     Dates: start: 2011
  10. MONOCORDIL RETARD [Concomitant]
     Dates: start: 1993
  11. SERETIDE [Concomitant]
     Active Substance: FLUTICASONE FUROATE\SALMETEROL XINAFOATE
     Dosage: 25/250 MG
     Dates: start: 2004
  12. FRONTAL [Concomitant]
     Active Substance: ALPRAZOLAM
  13. ROFLUMILAST [Suspect]
     Active Substance: ROFLUMILAST
     Dosage: 0.5 DF
     Route: 048
     Dates: start: 201403
  14. FINASTERIDE. [Concomitant]
     Active Substance: FINASTERIDE
  15. SPIRIVA [Concomitant]
     Active Substance: TIOTROPIUM BROMIDE MONOHYDRATE
     Dates: start: 2004
  16. LABIRIN [Concomitant]
     Active Substance: BETAHISTINE
     Dates: start: 2013
  17. ESOMEPRAZOLE [Concomitant]
     Active Substance: ESOMEPRAZOLE
     Dates: start: 2013
  18. CAPILAREMA [Concomitant]
  19. SINGULAIR [Concomitant]
     Active Substance: MONTELUKAST SODIUM
     Dates: start: 2013

REACTIONS (8)
  - Heart rate increased [Recovered/Resolved]
  - Lung infection [Recovered/Resolved]
  - Asthenia [Unknown]
  - Headache [Not Recovered/Not Resolved]
  - Subdural haematoma [Not Recovered/Not Resolved]
  - Inappropriate schedule of drug administration [Recovered/Resolved]
  - Decreased appetite [Recovered/Resolved]
  - Weight decreased [Unknown]

NARRATIVE: CASE EVENT DATE: 201403
